FAERS Safety Report 5374947-6 (Version None)
Quarter: 2007Q2

REPORT INFORMATION
  Report Type: 
  Country: None (occurrence: None)
  Receive Date: 20070629
  Receipt Date: 20070621
  Transmission Date: 20071010
  Serious: Yes (Hospitalization)
  Sender: FDA-Public Use
  Company Number: PHBS2007SK10742

PATIENT
  Age: 77 Year
  Sex: Female

DRUGS (8)
  1. TRILEPTAL [Suspect]
     Dosage: 300 MG, BID
     Route: 048
  2. LUCETAM [Concomitant]
     Dosage: 1200 MG/DAY
     Route: 048
  3. ANOPYRIN [Concomitant]
     Dosage: 100 MG/DAY
     Route: 048
  4. CAVINTON [Concomitant]
     Dosage: 1 DF, TID
     Route: 048
  5. BISMORAL [Concomitant]
     Dosage: 1 DF, Q12H
     Route: 048
  6. ENALAPRIL [Concomitant]
     Dosage: 5 MG/DAY
     Route: 065
  7. MODURETIC 5-50 [Concomitant]
     Dosage: 1 TABLET EVERY OTHER DAY
     Route: 048
  8. CONCOR [Concomitant]
     Dosage: 5 MG/DAY
     Route: 065

REACTIONS (1)
  - INAPPROPRIATE ANTIDIURETIC HORMONE SECRETION [None]
